FAERS Safety Report 8166993-4 (Version None)
Quarter: 2012Q1

REPORT INFORMATION
  Report Type: 
  Country: None (occurrence: None)
  Receive Date: 20120227
  Receipt Date: 20120217
  Transmission Date: 20120608
  Serious: Yes (Life-Threatening, Hospitalization)
  Sender: FDA-Public Use
  Company Number: US-NOVOPROD-340795

PATIENT
  Age: 58 Year
  Sex: Female
  Weight: 92.063 kg

DRUGS (5)
  1. LIRAGLUTIDE FLEXPEN [Suspect]
     Dosage: 3.0 MG, QD
     Route: 058
     Dates: end: 20111101
  2. LIRAGLUTIDE FLEXPEN [Suspect]
     Dosage: 1.2 MG, QD
     Route: 058
     Dates: start: 20111125
  3. DIOVAN [Concomitant]
     Indication: HYPERTENSION
     Dosage: 160.0 MG, QD
     Dates: start: 20111108, end: 20111108
  4. DIOVAN [Concomitant]
     Dosage: 360.0 MG, QD
     Dates: start: 20111109, end: 20111109
  5. LIRAGLUTIDE FLEXPEN [Suspect]
     Indication: OBESITY
     Dosage: 0.6 MG, QD
     Route: 058
     Dates: start: 20110815

REACTIONS (1)
  - PNEUMONIA [None]
